FAERS Safety Report 20808529 (Version 4)
Quarter: 2022Q3

REPORT INFORMATION
  Report Type: Report from Study
  Country: FR (occurrence: FR)
  Receive Date: 20220510
  Receipt Date: 20220811
  Transmission Date: 20221026
  Serious: Yes (Other)
  Sender: FDA-Public Use
  Company Number: FR-GLAXOSMITHKLINE-FR2022EME074078

PATIENT

DRUGS (1)
  1. SOTROVIMAB [Suspect]
     Active Substance: SOTROVIMAB
     Indication: COVID-19
     Dosage: 500 MG
     Route: 042
     Dates: start: 20220401, end: 20220401

REACTIONS (4)
  - Bradycardia [Recovering/Resolving]
  - Hypotension [Recovering/Resolving]
  - Malaise [Unknown]
  - Presyncope [Recovering/Resolving]

NARRATIVE: CASE EVENT DATE: 20220401
